FAERS Safety Report 7795447-X (Version None)
Quarter: 2011Q4

REPORT INFORMATION
  Report Type: 
  Country: None (occurrence: None)
  Receive Date: 20111004
  Receipt Date: 20110927
  Transmission Date: 20120403
  Serious: Yes (Death, Other)
  Sender: FDA-Public Use
  Company Number: US-ACTELION-A-US2011-54684

PATIENT

DRUGS (1)
  1. VENTAVIS [Suspect]
     Indication: PULMONARY ARTERIAL HYPERTENSION
     Dosage: UNK ?G, UNK
     Route: 055
     Dates: start: 20090513

REACTIONS (2)
  - COMA [None]
  - DEATH [None]
